FAERS Safety Report 25878124 (Version 2)
Quarter: 2025Q4

REPORT INFORMATION
  Report Type: Spontaneous
  Country: EU (occurrence: EU)
  Receive Date: 20251003
  Receipt Date: 20251210
  Transmission Date: 20260118
  Serious: No
  Sender: SANDOZ
  Company Number: EU-SANDOZ-SDZ2025PL072866

PATIENT
  Sex: Male

DRUGS (1)
  1. OMNITROPE [Suspect]
     Active Substance: SOMATROPIN
     Indication: Growth hormone deficiency
     Dosage: UNK
     Route: 065

REACTIONS (1)
  - Circumstance or information capable of leading to medication error [Unknown]
